FAERS Safety Report 11641068 (Version 1)
Quarter: 2015Q4

REPORT INFORMATION
  Report Type: Spontaneous
  Country: CN (occurrence: CN)
  Receive Date: 20151019
  Receipt Date: 20151019
  Transmission Date: 20160304
  Serious: Yes (Hospitalization, Other)
  Sender: FDA-Public Use
  Company Number: CN-PFIZER INC-2015344904

PATIENT
  Age: 77 Year
  Sex: Female
  Weight: 61.5 kg

DRUGS (2)
  1. LIPITOR [Suspect]
     Active Substance: ATORVASTATIN CALCIUM
     Indication: HYPERLIPIDAEMIA
     Dosage: 20 MG, 1X/DAY
     Route: 048
     Dates: start: 20150401, end: 20150404
  2. LOSARTAN. [Concomitant]
     Active Substance: LOSARTAN
     Indication: HYPERTENSION
     Dosage: 100 MG, 1X/DAY
     Route: 048
     Dates: start: 20150401, end: 20150414

REACTIONS (6)
  - Aspartate aminotransferase increased [Recovered/Resolved]
  - Fall [Unknown]
  - Nausea [Unknown]
  - Loss of consciousness [Unknown]
  - Alanine aminotransferase increased [Recovered/Resolved]
  - Decreased appetite [Unknown]

NARRATIVE: CASE EVENT DATE: 20150404
